FAERS Safety Report 10091233 (Version 3)
Quarter: 2015Q3

REPORT INFORMATION
  Report Type: Spontaneous
  Country: US (occurrence: US)
  Receive Date: 20140421
  Receipt Date: 20150812
  Transmission Date: 20151125
  Serious: No
  Sender: FDA-Public Use
  Company Number: US-GILEAD-2012-0061575

PATIENT
  Age: 47 Year
  Sex: Female

DRUGS (1)
  1. LETAIRIS [Suspect]
     Active Substance: AMBRISENTAN
     Indication: PULMONARY ARTERIAL HYPERTENSION
     Dosage: 10 MG, UNK
     Route: 048
     Dates: start: 20120627

REACTIONS (10)
  - Cough [Unknown]
  - Bronchitis [Unknown]
  - Wheezing [Unknown]
  - Vomiting [Unknown]
  - Nasopharyngitis [Unknown]
  - Asthma [Unknown]
  - Dizziness [Unknown]
  - Diarrhoea [Unknown]
  - Nasal congestion [Unknown]
  - Vision blurred [Unknown]
